FAERS Safety Report 7764188-7 (Version None)
Quarter: 2011Q3

REPORT INFORMATION
  Report Type: 
  Country: None (occurrence: None)
  Receive Date: 20110921
  Receipt Date: 20110915
  Transmission Date: 20111222
  Serious: No
  Sender: FDA-Public Use
  Company Number: US-B.I. PHARMACEUTICALS,INC./RIDGEFIELD-2011-BP-22294BP

PATIENT

DRUGS (1)
  1. AGGRENOX [Suspect]
     Route: 048

REACTIONS (1)
  - INCORRECT DRUG DOSAGE FORM ADMINISTERED [None]
